FAERS Safety Report 14330855 (Version 3)
Quarter: 2018Q1

REPORT INFORMATION
  Report Type: Spontaneous
  Country: JP (occurrence: JP)
  Receive Date: 20171228
  Receipt Date: 20180323
  Transmission Date: 20180509
  Serious: Yes (Other)
  Sender: FDA-Public Use
  Company Number: JP-BRISTOL-MYERS SQUIBB COMPANY-BMS-2017-118142

PATIENT
  Age: 73 Year
  Sex: Female

DRUGS (1)
  1. OPDIVO [Suspect]
     Active Substance: NIVOLUMAB
     Indication: LUNG ADENOCARCINOMA
     Dosage: 160 MG, UNK
     Route: 041
     Dates: start: 20161104, end: 20161216

REACTIONS (6)
  - Decreased appetite [Recovering/Resolving]
  - Palpitations [Recovering/Resolving]
  - Malignant neoplasm progression [Unknown]
  - Malaise [Recovering/Resolving]
  - Stomatitis [Recovering/Resolving]
  - Urticaria [Recovering/Resolving]

NARRATIVE: CASE EVENT DATE: 20161125
